FAERS Safety Report 14037044 (Version 2)
Quarter: 2017Q4

REPORT INFORMATION
  Report Type: Spontaneous
  Country: PT (occurrence: PT)
  Receive Date: 20171004
  Receipt Date: 20171007
  Transmission Date: 20180321
  Serious: Yes (Death)
  Sender: FDA-Public Use
  Company Number: PT-ROCHE-2000390

PATIENT
  Sex: Female
  Weight: 71 kg

DRUGS (1)
  1. ESBRIET [Suspect]
     Active Substance: PIRFENIDONE
     Indication: IDIOPATHIC PULMONARY FIBROSIS
     Dosage: ACCORDING TO SMPC
     Route: 048
     Dates: start: 201601, end: 201701

REACTIONS (1)
  - Idiopathic pulmonary fibrosis [Fatal]
